FAERS Safety Report 16811111 (Version 1)
Quarter: 2019Q3

REPORT INFORMATION
  Report Type: Report from Study
  Country: MX (occurrence: MX)
  Receive Date: 20190916
  Receipt Date: 20190916
  Transmission Date: 20191005
  Serious: Yes (Other)
  Sender: FDA-Public Use
  Company Number: PHHY2019MX214842

PATIENT
  Age: 10 Year
  Sex: Male
  Weight: 35.7 kg

DRUGS (2)
  1. OMNITROPE [Suspect]
     Active Substance: SOMATROPIN
     Indication: BODY HEIGHT BELOW NORMAL
     Dosage: 2 MG, QD
     Route: 058
     Dates: start: 20171214
  2. OMNITROPE [Suspect]
     Active Substance: SOMATROPIN
     Dosage: 2 MG, QD
     Route: 058

REACTIONS (8)
  - Headache [Not Recovered/Not Resolved]
  - Hyperglycaemia [Recovered/Resolved]
  - Incorrect dose administered [Unknown]
  - Nausea [Unknown]
  - Malaise [Unknown]
  - Vomiting [Not Recovered/Not Resolved]
  - Gastric infection [Unknown]
  - Stress [Unknown]

NARRATIVE: CASE EVENT DATE: 2018
